FAERS Safety Report 8303003-X (Version None)
Quarter: 2012Q2

REPORT INFORMATION
  Report Type: 
  Country: None (occurrence: None)
  Receive Date: 20120421
  Receipt Date: 20111110
  Transmission Date: 20120825
  Serious: Yes (Other)
  Sender: FDA-Public Use
  Company Number: PHHY2011JP80969

PATIENT
  Sex: Female
  Weight: 151 kg

DRUGS (8)
  1. DOXAZOSIN MESYLATE [Concomitant]
  2. TORSEMIDE [Concomitant]
     Route: 048
     Dates: start: 20110520
  3. MICAMLO [Suspect]
     Dosage: 2 DF, UNK
     Route: 048
     Dates: start: 20110719, end: 20110909
  4. CRESTOR [Concomitant]
     Route: 048
  5. BISOPROLOL FUMARATE [Concomitant]
     Route: 048
  6. RASILEZ [Suspect]
     Indication: HYPERTENSION
     Dosage: 300 MG, UNK
     Route: 048
     Dates: start: 20110719
  7. ASPIRIN [Concomitant]
     Route: 048
  8. PLAVIX [Concomitant]
     Dosage: 75 MG, UNK
     Route: 048

REACTIONS (2)
  - INTERSTITIAL LUNG DISEASE [None]
  - DYSPNOEA [None]
